FAERS Safety Report 11350380 (Version 1)
Quarter: 2015Q3

REPORT INFORMATION
  Report Type: Spontaneous
  Country: CH (occurrence: CH)
  Receive Date: 20150807
  Receipt Date: 20150807
  Transmission Date: 20151125
  Serious: Yes (Hospitalization)
  Sender: FDA-Public Use
  Company Number: CH-BAYER-2015-389647

PATIENT
  Age: 53 Year
  Sex: Female

DRUGS (9)
  1. DEPAKINE CHRONO [Concomitant]
     Active Substance: VALPROATE SODIUM
     Dosage: 2000 MG, QD
     Route: 048
  2. EUTHYROX [Concomitant]
     Active Substance: LEVOTHYROXINE SODIUM
     Dosage: 125 ?G, QD
     Route: 048
  3. TEMESTA [Concomitant]
     Active Substance: LORAZEPAM
     Dosage: 1.25 MG, BID
     Route: 048
  4. ONBREZ [Concomitant]
     Active Substance: INDACATEROL
     Dosage: 150 ?G, QD
     Route: 055
  5. MAGNESIUM [Concomitant]
     Active Substance: MAGNESIUM
     Dosage: 10 MMOL, QD
     Route: 048
  6. CLOZAPINE. [Suspect]
     Active Substance: CLOZAPINE
     Indication: SCHIZOAFFECTIVE DISORDER BIPOLAR TYPE
     Dosage: 700 MG, QD
     Route: 048
     Dates: start: 2006
  7. TOPAMAX [Concomitant]
     Active Substance: TOPIRAMATE
     Dosage: 50 MG, BID
     Route: 048
  8. CIPROFLOXACIN. [Suspect]
     Active Substance: CIPROFLOXACIN
     Indication: URINARY TRACT INFECTION BACTERIAL
     Dosage: UNK
     Route: 048
     Dates: start: 20150506, end: 20150516
  9. SPASMO URGENIN TC [Concomitant]
     Dosage: 20 MG, BID
     Route: 048

REACTIONS (17)
  - Hyponatraemia [Recovered/Resolved]
  - C-reactive protein increased [Recovering/Resolving]
  - Blood potassium decreased [Recovered/Resolved]
  - Psychomotor skills impaired [Recovered/Resolved]
  - Somnolence [Recovered/Resolved]
  - Disturbance in attention [Recovered/Resolved]
  - Blood creatine phosphokinase increased [Recovering/Resolving]
  - Hypochloraemia [Unknown]
  - Dyspnoea [Recovered/Resolved]
  - Disorientation [Recovered/Resolved]
  - Pyrexia [Recovered/Resolved]
  - Leukocytosis [Recovered/Resolved]
  - Aspartate aminotransferase increased [Recovered/Resolved]
  - Fall [Recovered/Resolved]
  - Urinary incontinence [Recovered/Resolved]
  - Confusional state [Recovered/Resolved]
  - Acute kidney injury [Recovered/Resolved]

NARRATIVE: CASE EVENT DATE: 20150516
